FAERS Safety Report 5670357-2 (Version None)
Quarter: 2008Q1

REPORT INFORMATION
  Report Type: 
  Country: None (occurrence: None)
  Receive Date: 20080313
  Receipt Date: 20080304
  Transmission Date: 20080703
  Serious: Yes (Hospitalization, Other)
  Sender: FDA-Public Use
  Company Number: 08-000390

PATIENT
  Age: 63 Year
  Sex: Female

DRUGS (2)
  1. DORYX [Suspect]
     Dosage: ORAL
     Route: 048
     Dates: start: 20080116, end: 20080120
  2. COPAXONE [Suspect]
     Indication: MULTIPLE SCLEROSIS
     Dosage: 20 MG, QD, SUBCUTANEOUS
     Route: 058
     Dates: start: 20071201

REACTIONS (10)
  - BLOOD POTASSIUM DECREASED [None]
  - CARDIAC MURMUR [None]
  - DEHYDRATION [None]
  - DIZZINESS [None]
  - DYSPNOEA [None]
  - FALL [None]
  - LOSS OF CONSCIOUSNESS [None]
  - MALAISE [None]
  - PANIC ATTACK [None]
  - VOMITING [None]
